FAERS Safety Report 8402151 (Version 2)
Quarter: 2013Q2

REPORT INFORMATION
  Report Type: Spontaneous
  Country: US (occurrence: None)
  Receive Date: 20111227
  Receipt Date: 20121031
  Transmission Date: 20140414
  Serious: No
  Sender: FDA-Public Use
  Company Number: PHEH2011US009388

PATIENT
  Age: 32 Year
  Sex: Female
  Weight: 77.1 kg

DRUGS (1)
  1. GILENYA [Suspect]
     Indication: MULTIPLE SCLEROSIS
     Route: 048
     Dates: start: 20110716, end: 20110727

REACTIONS (4)
  - BLOOD PRESSURE FLUCTUATION [None]
  - HEADACHE [None]
  - Blood pressure increased [None]
  - Migraine [None]
